FAERS Safety Report 17975085 (Version 1)
Quarter: 2020Q3

REPORT INFORMATION
  Report Type: Report from Study
  Country: KW (occurrence: KW)
  Receive Date: 20200702
  Receipt Date: 20200702
  Transmission Date: 20201103
  Serious: Yes (Death, Other)
  Sender: FDA-Public Use
  Company Number: NVSC2020KW004398

PATIENT
  Age: 55 Year
  Sex: Female

DRUGS (1)
  1. TYKERB [Suspect]
     Active Substance: LAPATINIB DITOSYLATE
     Indication: BREAST CANCER METASTATIC
     Dosage: 1250 MG, QD
     Route: 048
     Dates: start: 20190829, end: 201912

REACTIONS (3)
  - Metastases to central nervous system [Fatal]
  - Drug ineffective [Not Recovered/Not Resolved]
  - Movement disorder [Fatal]

NARRATIVE: CASE EVENT DATE: 201912
